FAERS Safety Report 12248356 (Version 6)
Quarter: 2016Q3

REPORT INFORMATION
  Report Type: Spontaneous
  Country: DE (occurrence: DE)
  Receive Date: 20160408
  Receipt Date: 20160801
  Transmission Date: 20161109
  Serious: Yes (Hospitalization, Other)
  Sender: FDA-Public Use
  Company Number: DE-BRISTOL-MYERS SQUIBB COMPANY-BMS-2016-024923

PATIENT
  Age: 63 Year
  Sex: Female
  Weight: 53 kg

DRUGS (2)
  1. OPDIVO [Suspect]
     Active Substance: NIVOLUMAB
     Dosage: UNK
     Route: 065
     Dates: start: 20160517
  2. OPDIVO [Suspect]
     Active Substance: NIVOLUMAB
     Indication: LUNG NEOPLASM MALIGNANT
     Dosage: 3 MG/KG, QCYCLE
     Route: 042
     Dates: start: 20160209

REACTIONS (11)
  - Myositis [Unknown]
  - Diplopia [Recovering/Resolving]
  - Troponin I increased [Unknown]
  - Musculoskeletal pain [Unknown]
  - Dyspnoea [Recovering/Resolving]
  - Dry mouth [Unknown]
  - Angina pectoris [Recovering/Resolving]
  - Eyelid ptosis [Recovering/Resolving]
  - Blood creatine phosphokinase increased [Recovering/Resolving]
  - Electrocardiogram change [Recovering/Resolving]
  - Antineutrophil cytoplasmic antibody positive [Unknown]

NARRATIVE: CASE EVENT DATE: 20160315
